FAERS Safety Report 9228518 (Version 2)
Quarter: 2013Q2

REPORT INFORMATION
  Report Type: Report from Study
  Country: HU (occurrence: HU)
  Receive Date: 20130412
  Receipt Date: 20130503
  Transmission Date: 20140414
  Serious: Yes (Hospitalization)
  Sender: FDA-Public Use
  Company Number: HU-GLAXOSMITHKLINE-B0882509A

PATIENT
  Age: 48 Year
  Sex: Male

DRUGS (3)
  1. SERETIDE [Suspect]
     Indication: ASTHMA
     Dosage: 2PUFF SEE DOSAGE TEXT
     Route: 055
     Dates: start: 201212, end: 201303
  2. PERINDOPRIL ERBUMINE [Concomitant]
     Indication: HYPERTENSION
  3. TAMSULOSIN HYDROCHLORIDE [Concomitant]
     Indication: PROSTATIC DISORDER

REACTIONS (4)
  - Upper respiratory fungal infection [Recovered/Resolved]
  - Dysphonia [Recovered/Resolved]
  - Surgery [Recovered/Resolved]
  - Dyspnoea [Recovered/Resolved]
